FAERS Safety Report 7298069-2 (Version None)
Quarter: 2011Q1

REPORT INFORMATION
  Report Type: 
  Country: None (occurrence: None)
  Receive Date: 20110217
  Receipt Date: 20110209
  Transmission Date: 20110831
  Serious: Yes (Other)
  Sender: FDA-Public Use
  Company Number: PHHY2011AU05658

PATIENT
  Sex: Female

DRUGS (1)
  1. ACLASTA [Suspect]
     Dosage: UNK
     Dates: start: 20101116

REACTIONS (5)
  - VISUAL IMPAIRMENT [None]
  - DRY MOUTH [None]
  - ABNORMAL SENSATION IN EYE [None]
  - INSOMNIA [None]
  - ABDOMINAL DISCOMFORT [None]
